FAERS Safety Report 10355309 (Version 1)
Quarter: 2014Q3

REPORT INFORMATION
  Report Type: Spontaneous
  Country: US (occurrence: US)
  Receive Date: 20140731
  Receipt Date: 20140731
  Transmission Date: 20150326
  Serious: Yes (Life-Threatening)
  Sender: FDA-Public Use
  Company Number: 2014SP002351

PATIENT
  Sex: Female

DRUGS (1)
  1. LATUDA [Suspect]
     Active Substance: LURASIDONE HYDROCHLORIDE
     Route: 048
     Dates: start: 201407

REACTIONS (4)
  - Dysphonia [Unknown]
  - Anaphylactic reaction [Unknown]
  - Swollen tongue [Unknown]
  - Agitation [Unknown]

NARRATIVE: CASE EVENT DATE: 20140725
